FAERS Safety Report 20846976 (Version 2)
Quarter: 2022Q2

REPORT INFORMATION
  Report Type: Spontaneous
  Country: DE (occurrence: DE)
  Receive Date: 20220519
  Receipt Date: 20220602
  Transmission Date: 20220720
  Serious: Yes (Other)
  Sender: FDA-Public Use
  Company Number: DE-NOVARTISPH-NVSC2022DE108933

PATIENT
  Age: 90 Year
  Sex: Female

DRUGS (1)
  1. ASPIRIN [Suspect]
     Active Substance: ASPIRIN
     Indication: Carotid artery stenosis
     Dosage: UNK
     Route: 065

REACTIONS (3)
  - Thrombocytopenia [Recovering/Resolving]
  - Skin haemorrhage [Recovering/Resolving]
  - Product use issue [Unknown]
